FAERS Safety Report 4917590-2 (Version None)
Quarter: 2006Q1

REPORT INFORMATION
  Report Type: 
  Country: None (occurrence: None)
  Receive Date: 20060221
  Receipt Date: 20060210
  Transmission Date: 20060701
  Serious: Yes (Hospitalization)
  Sender: FDA-Public Use
  Company Number: US-MERCK-0602USA04062

PATIENT
  Age: 45 Year
  Sex: Male
  Weight: 102 kg

DRUGS (1)
  1. VIOXX [Suspect]
     Route: 048

REACTIONS (13)
  - AKINESIA [None]
  - CHEST PAIN [None]
  - CORONARY ARTERY RESTENOSIS [None]
  - CORONARY ARTERY STENOSIS [None]
  - MYOCARDIAL INFARCTION [None]
  - NASAL CONGESTION [None]
  - NASAL TURBINATE HYPERTROPHY [None]
  - PERICARDIAL EFFUSION [None]
  - SLEEP APNOEA SYNDROME [None]
  - THROMBOSIS [None]
  - THROMBOSIS IN DEVICE [None]
  - TRICUSPID VALVE INCOMPETENCE [None]
  - VENTRICULAR HYPOKINESIA [None]
